FAERS Safety Report 9383094 (Version 1)
Quarter: 2013Q3

REPORT INFORMATION
  Report Type: Spontaneous
  Country: GB (occurrence: GB)
  Receive Date: 20130704
  Receipt Date: 20130704
  Transmission Date: 20140515
  Serious: Yes (Other)
  Sender: FDA-Public Use
  Company Number: GB-JNJFOC-20130700406

PATIENT
  Age: 51 Year
  Sex: Male

DRUGS (2)
  1. NICORETTE INHALER [Suspect]
     Indication: PRODUCT USED FOR UNKNOWN INDICATION
     Route: 055
  2. NICORETTE INHALER [Suspect]
     Indication: PRODUCT USED FOR UNKNOWN INDICATION
     Route: 055

REACTIONS (5)
  - Nicotine dependence [Unknown]
  - Intentional drug misuse [Unknown]
  - Therapeutic response increased [Unknown]
  - Product taste abnormal [Unknown]
  - Product quality issue [None]
